FAERS Safety Report 7363438-9 (Version None)
Quarter: 2011Q1

REPORT INFORMATION
  Report Type: 
  Country: None (occurrence: None)
  Receive Date: 20110321
  Receipt Date: 20110310
  Transmission Date: 20110831
  Serious: Yes (Other)
  Sender: FDA-Public Use
  Company Number: US-US-EMD SERONO, INC.-230994K08USA

PATIENT
  Sex: Female
  Weight: 73 kg

DRUGS (6)
  1. REBIF [Suspect]
     Indication: MULTIPLE SCLEROSIS
     Route: 058
     Dates: start: 20000610, end: 20101201
  2. BACLOFEN [Concomitant]
     Indication: MUSCLE SPASMS
     Route: 065
  3. ATENOLOL [Concomitant]
     Indication: MIGRAINE
     Route: 065
  4. UNSPECIFIED BIRTH CONTROL PILLS [Concomitant]
  5. PROVIGIL [Concomitant]
     Indication: FATIGUE
     Route: 065
  6. CYMBALTA [Concomitant]
     Indication: HYPOAESTHESIA FACIAL
     Route: 065

REACTIONS (6)
  - OVARIAN CANCER [None]
  - UTERINE LEIOMYOMA [None]
  - CYST [None]
  - CARCINOEMBRYONIC ANTIGEN INCREASED [None]
  - BREAST CANCER [None]
  - MULTIPLE SCLEROSIS RELAPSE [None]
